FAERS Safety Report 8105291-1 (Version None)
Quarter: 2012Q1

REPORT INFORMATION
  Report Type: 
  Country: None (occurrence: None)
  Receive Date: 20120201
  Receipt Date: 20120120
  Transmission Date: 20120608
  Serious: Yes (Other)
  Sender: FDA-Public Use
  Company Number: PHHY2012DE006750

PATIENT
  Age: 28 Year
  Sex: Female

DRUGS (4)
  1. OXYTOCIN [Suspect]
  2. MISOPROSTOL [Concomitant]
  3. METHYLERGOMETRINE MALEATE [Suspect]
  4. SULPROSTONE [Concomitant]

REACTIONS (11)
  - DISSEMINATED INTRAVASCULAR COAGULATION [None]
  - FIBRINOLYSIS INCREASED [None]
  - VISUAL FIELD DEFECT [None]
  - THROMBOCYTOPENIA [None]
  - NEUROLOGICAL SYMPTOM [None]
  - EPISTAXIS [None]
  - COAGULOPATHY [None]
  - HAEMORRHAGIC DIATHESIS [None]
  - SUBCUTANEOUS HAEMATOMA [None]
  - AZOTAEMIA [None]
  - DRUG INEFFECTIVE [None]
